FAERS Safety Report 5048582-3 (Version None)
Quarter: 2006Q3

REPORT INFORMATION
  Report Type: 
  Country: None (occurrence: None)
  Receive Date: 20060705
  Receipt Date: 20060628
  Transmission Date: 20061208
  Serious: Yes (Death, Hospitalization)
  Sender: FDA-Public Use
  Company Number: TCI2005A04742

PATIENT
  Age: 81 Year
  Sex: Male

DRUGS (5)
  1. LEUPROLIDE ACETATE [Suspect]
     Indication: METASTASES TO BONE
     Dosage: 11.25 MG
     Route: 058
     Dates: start: 20051104
  2. LEUPROLIDE ACETATE [Suspect]
     Indication: PROSTATE CANCER
     Dosage: 11.25 MG
     Route: 058
     Dates: start: 20051104
  3. CASODEX [Suspect]
     Indication: PROSTATE CANCER
     Dosage: 80 MG (80 MG 1 IN 1 D)
     Route: 048
     Dates: start: 20051017, end: 20051118
  4. LOXONIN (LOXOPROFEN SODIUM) [Concomitant]
  5. SELBEX (TEPRENONE) [Concomitant]

REACTIONS (5)
  - CARDIAC FAILURE ACUTE [None]
  - INTERSTITIAL LUNG DISEASE [None]
  - PNEUMONIA [None]
  - PULMONARY OEDEMA [None]
  - RESPIRATORY FAILURE [None]
